FAERS Safety Report 7581546-4 (Version None)
Quarter: 2011Q2

REPORT INFORMATION
  Report Type: 
  Country: None (occurrence: None)
  Receive Date: 20110629
  Receipt Date: 20110624
  Transmission Date: 20111010
  Serious: Yes (Hospitalization)
  Sender: FDA-Public Use
  Company Number: PHHY2011CH56177

PATIENT
  Age: 60 Year
  Sex: Female

DRUGS (2)
  1. ESIDRIX [Suspect]
     Indication: ESSENTIAL HYPERTENSION
     Dosage: UNK
     Dates: start: 20110311, end: 20110313
  2. LOSARTAN POTASSIUM [Concomitant]
     Indication: ESSENTIAL HYPERTENSION
     Dosage: 50 MG, UNK
     Route: 048

REACTIONS (9)
  - HEADACHE [None]
  - HYPOKALAEMIA [None]
  - NERVOUS SYSTEM DISORDER [None]
  - ABDOMINAL PAIN [None]
  - VISUAL IMPAIRMENT [None]
  - NAUSEA [None]
  - HYPONATRAEMIA [None]
  - INAPPROPRIATE ANTIDIURETIC HORMONE SECRETION [None]
  - URINE SODIUM DECREASED [None]
